FAERS Safety Report 5159390-7 (Version None)
Quarter: 2006Q4

REPORT INFORMATION
  Report Type: 
  Country: None (occurrence: None)
  Receive Date: 20060918
  Receipt Date: 20060804
  Transmission Date: 20070319
  Serious: Yes (Hospitalization)
  Sender: FDA-Public Use
  Company Number: US-JNJFOC-20060801750

PATIENT
  Age: 30 Year
  Sex: Female
  Weight: 72.5755 kg

DRUGS (2)
  1. ORTHO EVRA [Suspect]
     Indication: MENSTRUATION IRREGULAR
     Dosage: 1 DOSE(S), 3 IN 4 WEEK, TRANSDERMAL
     Route: 062
     Dates: end: 20051101
  2. ORTHO EVRA [Suspect]
     Indication: OVARIAN CYST
     Dosage: 1 DOSE(S), 3 IN 4 WEEK, TRANSDERMAL
     Route: 062
     Dates: end: 20051101

REACTIONS (4)
  - ABDOMINAL PAIN [None]
  - DYSPNOEA [None]
  - PULMONARY EMBOLISM [None]
  - THYROID NEOPLASM [None]
